FAERS Safety Report 9431063 (Version 2)
Quarter: 2013Q4

REPORT INFORMATION
  Report Type: Spontaneous
  Country: US (occurrence: US)
  Receive Date: 20130730
  Receipt Date: 20131101
  Transmission Date: 20140711
  Serious: Yes (Death, Hospitalization)
  Sender: FDA-Public Use
  Company Number: US-B.I. PHARMACEUTICALS,INC./RIDGEFIELD-2013-BI-22495BP

PATIENT
  Age: 64 Year
  Sex: Male

DRUGS (11)
  1. SPIRIVA [Suspect]
     Indication: CHRONIC OBSTRUCTIVE PULMONARY DISEASE
     Dosage: 18 MCG
     Route: 055
     Dates: start: 2008
  2. ASPIRIN [Concomitant]
  3. COUMADIN [Concomitant]
  4. ALDACTONE [Concomitant]
  5. IMDUR [Concomitant]
  6. POTASSIUM [Concomitant]
  7. LASIX [Concomitant]
  8. AMIODARONE [Concomitant]
  9. TOPROL [Concomitant]
  10. ZOCOR [Concomitant]
  11. ALLOPURINOL [Concomitant]

REACTIONS (2)
  - Cardiac failure congestive [Fatal]
  - Pneumonia [Fatal]
